FAERS Safety Report 6285602-2 (Version None)
Quarter: 2009Q3

REPORT INFORMATION
  Report Type: 
  Country: None (occurrence: None)
  Receive Date: 20090724
  Receipt Date: 20090716
  Transmission Date: 20100115
  Serious: Yes (Hospitalization)
  Sender: FDA-Public Use
  Company Number: DSA_34020_2009

PATIENT
  Sex: Male

DRUGS (1)
  1. XENAZINE [Suspect]
     Indication: HUNTINGTON'S CHOREA
     Dosage: 12.5 MG BID
     Dates: start: 20090527, end: 20090706

REACTIONS (3)
  - COLD SWEAT [None]
  - HYPERTENSION [None]
  - PERIPHERAL COLDNESS [None]
